FAERS Safety Report 18757810 (Version 1)
Quarter: 2021Q1

REPORT INFORMATION
  Report Type: Spontaneous
  Country: US (occurrence: US)
  Receive Date: 20210119
  Receipt Date: 20210119
  Transmission Date: 20210419
  Serious: Yes (Other)
  Sender: FDA-Public Use
  Company Number: US-INCYTE CORPORATION-2021IN000345

PATIENT

DRUGS (1)
  1. JAKAFI [Suspect]
     Active Substance: RUXOLITINIB
     Dosage: 10 MG (TWO 5 MG TABLETS) QAM, 5 MG TABLET QPM
     Route: 048
     Dates: start: 20201215

REACTIONS (3)
  - Fatigue [Unknown]
  - Urinary retention [Unknown]
  - Epistaxis [Unknown]
